FAERS Safety Report 9784268 (Version 1)
Quarter: 2013Q4

REPORT INFORMATION
  Report Type: Spontaneous
  Country: US (occurrence: US)
  Receive Date: 20131226
  Receipt Date: 20131226
  Transmission Date: 20140711
  Serious: No
  Sender: FDA-Public Use
  Company Number: US-BIOGENIDEC-2013BI121930

PATIENT
  Sex: Female
  Weight: 65 kg

DRUGS (7)
  1. TECFIDERA [Suspect]
     Indication: MULTIPLE SCLEROSIS
     Route: 048
     Dates: start: 201306
  2. EFFEXOR [Concomitant]
  3. TIAZAC [Concomitant]
  4. PRILOSEC [Concomitant]
  5. CALCIUM [Concomitant]
  6. ZYRTEC [Concomitant]
  7. TEKTURNA [Concomitant]

REACTIONS (2)
  - Skin warm [Unknown]
  - Erythema [Unknown]
